FAERS Safety Report 25479901 (Version 1)
Quarter: 2025Q2

REPORT INFORMATION
  Report Type: Spontaneous
  Country: GB (occurrence: GB)
  Receive Date: 20250625
  Receipt Date: 20250625
  Transmission Date: 20250716
  Serious: Yes (Life-Threatening, Hospitalization, Other)
  Sender: ELI LILLY AND COMPANY
  Company Number: None

PATIENT
  Age: 44 Year
  Sex: Female

DRUGS (1)
  1. MOUNJARO [Suspect]
     Active Substance: TIRZEPATIDE
     Indication: Weight control
     Dosage: 10 MG, DAILY
     Route: 065
     Dates: start: 20250201, end: 20250530

REACTIONS (3)
  - Drug-induced liver injury [Recovering/Resolving]
  - Inappropriate schedule of product administration [Unknown]
  - Overdose [Unknown]
